FAERS Safety Report 23882192 (Version 1)
Quarter: 2024Q2

REPORT INFORMATION
  Report Type: Spontaneous
  Country: US (occurrence: US)
  Receive Date: 20240521
  Receipt Date: 20240521
  Transmission Date: 20240716
  Serious: No
  Sender: FDA-Public Use
  Company Number: US-ABBVIE-5760282

PATIENT
  Sex: Female

DRUGS (1)
  1. ARMOUR THYROID [Suspect]
     Active Substance: THYROID, PORCINE
     Indication: Hypothyroidism
     Dosage: FORM STRENGTH: 120MG
     Route: 048

REACTIONS (6)
  - Allergic reaction to excipient [Recovered/Resolved]
  - Periarthritis [Recovered/Resolved]
  - Mobility decreased [Unknown]
  - Fall [Unknown]
  - Arthralgia [Unknown]
  - Shoulder fracture [Unknown]
